FAERS Safety Report 19507155 (Version 2)
Quarter: 2021Q3

REPORT INFORMATION
  Report Type: Spontaneous
  Country: FR (occurrence: FR)
  Receive Date: 20210708
  Receipt Date: 20210716
  Transmission Date: 20211014
  Serious: Yes (Other)
  Sender: FDA-Public Use
  Company Number: FR-JNJFOC-20210707641

PATIENT
  Sex: Male

DRUGS (1)
  1. REMICADE [Suspect]
     Active Substance: INFLIXIMAB
     Indication: NEUROSARCOIDOSIS
     Dosage: 510 MG/KG EVERY 410 WEEKS, MOST COMMONLY 5 MG/KG EVERY 8 WEEKS
     Route: 042

REACTIONS (4)
  - Epilepsy [Unknown]
  - Product use in unapproved indication [Unknown]
  - Off label use [Unknown]
  - Neurosarcoidosis [Recovered/Resolved]
